FAERS Safety Report 13814200 (Version 1)
Quarter: 2017Q3

REPORT INFORMATION
  Report Type: Spontaneous
  Country: US (occurrence: US)
  Receive Date: 20170725
  Receipt Date: 20170725
  Transmission Date: 20171127
  Serious: Yes (Other)
  Sender: FDA-Public Use
  Company Number: None

PATIENT
  Age: 64 Year
  Sex: Female
  Weight: 68.9 kg

DRUGS (2)
  1. PEMBROLIZUMAB 200MG [Suspect]
     Active Substance: PEMBROLIZUMAB
     Indication: ACUTE MYELOID LEUKAEMIA
     Dosage: ONCE EVERY THREE WEEK 041
     Dates: start: 20170721
  2. AZACITIDINE4 75MG/M2 [Suspect]
     Active Substance: AZACITIDINE
     Indication: ACUTE MYELOID LEUKAEMIA
     Dosage: ONCE DAILY FOR 7 DAYS 041
     Dates: start: 20170707, end: 20170713

REACTIONS (9)
  - Head injury [None]
  - Headache [None]
  - Haemorrhoids [None]
  - Hypophagia [None]
  - Fluid intake reduced [None]
  - Drug dose omission [None]
  - Syncope [None]
  - Blood pressure increased [None]
  - Dizziness [None]

NARRATIVE: CASE EVENT DATE: 20170724
